FAERS Safety Report 6264268-1 (Version None)
Quarter: 2009Q3

REPORT INFORMATION
  Report Type: 
  Country: None (occurrence: None)
  Receive Date: 20090708
  Receipt Date: 20090701
  Transmission Date: 20100115
  Serious: Yes (Other)
  Sender: FDA-Public Use
  Company Number: 2009SP012725

PATIENT
  Age: 6 Month
  Sex: Female
  Weight: 8 kg

DRUGS (2)
  1. CELESTAMINE N (BETAMETHASONE) (BETAMETHASONE) [Suspect]
     Indication: BRONCHITIS
     Dosage: 1 ML; ; INH
     Route: 055
     Dates: end: 20090609
  2. CELESTAMINE N (BETAMETHASONE) (BETAMETHASONE) [Suspect]
     Indication: OFF LABEL USE
     Dosage: 1 ML; ; INH
     Route: 055
     Dates: end: 20090609

REACTIONS (5)
  - CREPITATIONS [None]
  - DYSPNOEA [None]
  - INCORRECT ROUTE OF DRUG ADMINISTRATION [None]
  - OFF LABEL USE [None]
  - RHONCHI [None]
